FAERS Safety Report 19752702 (Version 9)
Quarter: 2022Q2

REPORT INFORMATION
  Report Type: Report from Study
  Country: RU (occurrence: None)
  Receive Date: 20210827
  Receipt Date: 20220628
  Transmission Date: 20220720
  Serious: Yes (Other)
  Sender: FDA-Public Use
  Company Number: RU-ROCHE-2894584

PATIENT
  Age: 58 Year
  Sex: Male
  Weight: 85 kg

DRUGS (24)
  1. OCRELIZUMAB [Suspect]
     Active Substance: OCRELIZUMAB
     Indication: Progressive multiple sclerosis
     Dosage: DATE OF MOST RECENT DOSE OF OCRELIZUMAB PRIOR TO THIS SAE ONSET 09/MAR/2021 (600 MG)?OCRELIZUMAB WIL
     Route: 042
     Dates: start: 20181120
  2. CARDIOMAGNYL [Concomitant]
     Active Substance: ASPIRIN\MAGNESIUM HYDROXIDE
     Indication: Headache
     Route: 048
     Dates: start: 20190408
  3. IBUPROFEN [Concomitant]
     Active Substance: IBUPROFEN
     Indication: Arthralgia
     Route: 048
     Dates: start: 20190420
  4. IBUPROFEN [Concomitant]
     Active Substance: IBUPROFEN
     Indication: Headache
     Route: 048
     Dates: start: 201903, end: 20190407
  5. METHYLPREDNISOLONE [Concomitant]
     Active Substance: METHYLPREDNISOLONE
     Indication: Premedication
     Dosage: NEXT DOSE RECEIVED ON: 10/DEC/2018, 14/MAY/2019, 24/OCT/2019, 01/APR/2020, 22/SEP/2020 AND 09/MAR/20
     Route: 042
     Dates: start: 20181120, end: 20181120
  6. CHLOROPYRAMINE [Concomitant]
     Active Substance: CHLOROPYRAMINE
     Indication: Premedication
     Dosage: NEXT DOSE RECEIVED ON: 10/DEC/2018, 14/MAY/2019, 24/OCT/2019, 01/APR/2020, 22/SEP/2020 AND 09/MAR/20
     Route: 030
     Dates: start: 20181120, end: 20181120
  7. KETOPROFEN [Concomitant]
     Active Substance: KETOPROFEN
     Indication: COVID-19 pneumonia
     Route: 030
     Dates: start: 20220130
  8. KETOPROFEN [Concomitant]
     Active Substance: KETOPROFEN
     Route: 030
     Dates: start: 20220130
  9. KETOPROFEN [Concomitant]
     Active Substance: KETOPROFEN
     Route: 030
     Dates: start: 20220206, end: 20220207
  10. APIXABAN [Concomitant]
     Active Substance: APIXABAN
     Indication: COVID-19 pneumonia
     Route: 048
     Dates: start: 20220131, end: 20220131
  11. REMDESIVIR [Concomitant]
     Active Substance: REMDESIVIR
     Indication: COVID-19 pneumonia
     Route: 042
     Dates: start: 20220203, end: 20220203
  12. REMDESIVIR [Concomitant]
     Active Substance: REMDESIVIR
     Route: 042
     Dates: start: 20220204, end: 20220207
  13. LEVILIMAB [Concomitant]
     Indication: COVID-19 pneumonia
     Dates: start: 20220203, end: 20220203
  14. ACETYLCYSTEINE [Concomitant]
     Active Substance: ACETYLCYSTEINE
     Indication: COVID-19 pneumonia
     Dates: start: 20220203, end: 20220207
  15. MONTELUKAST SODIUM [Concomitant]
     Active Substance: MONTELUKAST SODIUM
     Indication: COVID-19 pneumonia
     Dates: start: 20220203, end: 20220207
  16. PREDNISOLONE [Concomitant]
     Active Substance: PREDNISOLONE
     Indication: COVID-19 pneumonia
     Dates: start: 20220203, end: 20220207
  17. HEPARIN [Concomitant]
     Active Substance: HEPARIN SODIUM
     Route: 058
     Dates: start: 20220203, end: 20220207
  18. .ALPHA.-LIPOIC ACID [Concomitant]
     Active Substance: .ALPHA.-LIPOIC ACID
     Route: 042
     Dates: start: 20220125, end: 20220201
  19. .ALPHA.-LIPOIC ACID [Concomitant]
     Active Substance: .ALPHA.-LIPOIC ACID
     Route: 042
     Dates: start: 20220203, end: 20220207
  20. LACTULOSE [Concomitant]
     Active Substance: LACTULOSE
     Route: 048
     Dates: start: 20220126, end: 20220127
  21. OMEPRAZOLE [Concomitant]
     Active Substance: OMEPRAZOLE
     Route: 048
     Dates: start: 20220203
  22. ASCORBIC ACID [Concomitant]
     Active Substance: ASCORBIC ACID
     Route: 042
     Dates: start: 20220131, end: 20220131
  23. ASCORBIC ACID [Concomitant]
     Active Substance: ASCORBIC ACID
     Route: 042
     Dates: start: 20220203, end: 20220207
  24. DROTAVERINE [Concomitant]
     Active Substance: DROTAVERINE
     Indication: Hypertension
     Route: 042
     Dates: start: 20220206, end: 20220206

REACTIONS (1)
  - Malignant melanoma [Not Recovered/Not Resolved]

NARRATIVE: CASE EVENT DATE: 20210723
